FAERS Safety Report 8909745 (Version 2)
Quarter: 2013Q1

REPORT INFORMATION
  Report Type: Spontaneous
  Country: US (occurrence: None)
  Receive Date: 20121109
  Receipt Date: 20130122
  Transmission Date: 20140127
  Serious: Yes (Life-Threatening, Hospitalization, Other)
  Sender: FDA-Public Use
  Company Number: IMP_06061_2012

PATIENT
  Age: 59 Year
  Sex: Female
  Weight: 70.3 kg

DRUGS (9)
  1. METFORMIN [Suspect]
     Indication: PRODUCT USED FOR UNKNOWN INDICATION
     Dosage: (DF [DISCONTINUED]),
     Route: 048
     Dates: start: 20110426, end: 20111019
  2. GEMFIBROZIL [Concomitant]
  3. NIACIN [Concomitant]
  4. GLIPIZIDE [Concomitant]
  5. OMEPRAZOLE [Concomitant]
  6. FUROSEMIDE [Concomitant]
  7. RISPERIDONE [Concomitant]
  8. LISINOPRIL [Concomitant]
  9. ASPIRIN [Concomitant]

REACTIONS (12)
  - Platelet count decreased [None]
  - Aspartate aminotransferase increased [None]
  - Alanine aminotransferase increased [None]
  - Jaundice [None]
  - Coagulopathy [None]
  - Hepatitis viral [None]
  - Dizziness [None]
  - Headache [None]
  - Nausea [None]
  - Vomiting [None]
  - International normalised ratio increased [None]
  - Hepatic fibrosis [None]
